FAERS Safety Report 19458975 (Version 1)
Quarter: 2021Q2

REPORT INFORMATION
  Report Type: Other
  Country: US (occurrence: US)
  Receive Date: 20210624
  Receipt Date: 20210624
  Transmission Date: 20210717
  Serious: Yes (Death)
  Sender: FDA-Public Use
  Company Number: US-B.BRAUN MEDICAL INC.-2113080

PATIENT
  Age: 65 Year
  Sex: Female

DRUGS (11)
  1. HYPERINSULINEMIC?EUGLYCEMIC THERAPY [Concomitant]
  2. ATENOLOL. [Concomitant]
     Active Substance: ATENOLOL
  3. CRYSTALLOIDS [Concomitant]
     Active Substance: UNSPECIFIED INGREDIENT
  4. NUTRILIPID I.V. FAT EMULSION [Suspect]
     Active Substance: SOYBEAN OIL
     Indication: HYPOTENSION
     Route: 042
  5. VERAPAMIL [Concomitant]
     Active Substance: VERAPAMIL HYDROCHLORIDE
  6. GLUCAGON. [Concomitant]
     Active Substance: GLUCAGON
  7. NOREPINEPHRINE. [Concomitant]
     Active Substance: NOREPINEPHRINE
  8. OLMESARTAN [Concomitant]
     Active Substance: OLMESARTAN
  9. VASOPRESSIN. [Concomitant]
     Active Substance: VASOPRESSIN
  10. CALCIUM [Concomitant]
     Active Substance: CALCIUM
  11. EPINEPHRINE. [Interacting]
     Active Substance: EPINEPHRINE

REACTIONS (4)
  - Hypertriglyceridaemia [None]
  - Acute respiratory distress syndrome [None]
  - Septic shock [None]
  - Overdose [None]
